FAERS Safety Report 19373052 (Version 1)
Quarter: 2021Q2

REPORT INFORMATION
  Report Type: Spontaneous
  Country: US (occurrence: US)
  Receive Date: 20210604
  Receipt Date: 20210604
  Transmission Date: 20210717
  Serious: Yes (Other)
  Sender: FDA-Public Use
  Company Number: None

PATIENT
  Age: 51 Year
  Sex: Female
  Weight: 63 kg

DRUGS (3)
  1. ASPIRIN. [Concomitant]
     Active Substance: ASPIRIN
  2. TUMS [Concomitant]
     Active Substance: CALCIUM CARBONATE
  3. ELIQUIS [Suspect]
     Active Substance: APIXABAN
     Indication: THROMBOSIS
     Route: 048
     Dates: start: 20210323, end: 20210531

REACTIONS (3)
  - Condition aggravated [None]
  - Migraine [None]
  - Dyspepsia [None]

NARRATIVE: CASE EVENT DATE: 20210531
